FAERS Safety Report 8521108-5 (Version None)
Quarter: 2012Q3

REPORT INFORMATION
  Report Type: 
  Country: None (occurrence: None)
  Receive Date: 20120712
  Receipt Date: 20120712
  Transmission Date: 20120928
  Serious: Yes (Other)
  Sender: FDA-Public Use
  Company Number: None

PATIENT
  Sex: Female
  Weight: 83.0083 kg

DRUGS (1)
  1. TAXOL [Suspect]
     Indication: BREAST CANCER
     Dosage: 155MG WEEKLY IV DRIP
     Route: 041
     Dates: start: 20120710, end: 20120710

REACTIONS (3)
  - FEELING HOT [None]
  - COUGH [None]
  - FLUSHING [None]
